FAERS Safety Report 5525238-1 (Version None)
Quarter: 2007Q4

REPORT INFORMATION
  Report Type: 
  Country: None (occurrence: None)
  Receive Date: 20071119
  Receipt Date: 20071119
  Transmission Date: 20080405
  Serious: Yes (Hospitalization)
  Sender: FDA-Public Use
  Company Number: None

PATIENT
  Age: 29 Year
  Sex: Male
  Weight: 90.7194 kg

DRUGS (1)
  1. LEVAQUIN [Suspect]
     Indication: BACTERIAL INFECTION
     Dosage: 1 TABLET PER DAY PO
     Route: 048
     Dates: start: 20070627, end: 20070629

REACTIONS (18)
  - ALOPECIA [None]
  - ASTHENIA [None]
  - CHEST PAIN [None]
  - CONFUSIONAL STATE [None]
  - DEAFNESS [None]
  - DYSPNOEA [None]
  - FAMILY STRESS [None]
  - GASTRIC DISORDER [None]
  - HYPOAESTHESIA [None]
  - IMPAIRED WORK ABILITY [None]
  - MARITAL PROBLEM [None]
  - NEGATIVE THOUGHTS [None]
  - NIGHT SWEATS [None]
  - NIGHTMARE [None]
  - PARAESTHESIA [None]
  - STOMATITIS [None]
  - TINNITUS [None]
  - VISUAL DISTURBANCE [None]
